FAERS Safety Report 6666322-9 (Version None)
Quarter: 2010Q2

REPORT INFORMATION
  Report Type: 
  Country: None (occurrence: None)
  Receive Date: 20100402
  Receipt Date: 20100325
  Transmission Date: 20101027
  Serious: Yes (Hospitalization, Other)
  Sender: FDA-Public Use
  Company Number: NO-ELI_LILLY_AND_COMPANY-NO201003005903

PATIENT
  Sex: Female

DRUGS (8)
  1. ZYPREXA [Suspect]
     Indication: HYPOMANIA
     Dosage: 15 MG, DAILY (1/D)
     Route: 048
     Dates: start: 20080313, end: 20080412
  2. BUSPAR [Concomitant]
     Indication: ANXIETY
     Dosage: 40 MG, DAILY (1/D)
     Route: 048
  3. TRIOBE [Concomitant]
     Dosage: UNK, DAILY (1/D)
     Route: 048
  4. MYCOSTATIN [Concomitant]
     Indication: FUNGAL INFECTION
     Dosage: 5 ML, 4/D
     Route: 048
     Dates: start: 20080418, end: 20080421
  5. HEMOFER /00023503/ [Concomitant]
     Dosage: UNK, 2/D
     Route: 048
  6. LAMICTAL CD [Concomitant]
     Indication: BIPOLAR DISORDER
     Dosage: 50 MG, DAILY (1/D)
     Route: 048
     Dates: start: 20080325, end: 20080419
  7. TRUXAL [Concomitant]
     Indication: ANXIETY
     Dosage: 30 MG, DAILY (1/D)
     Route: 048
     Dates: end: 20080416
  8. MULTI-VITAMINS [Concomitant]
     Indication: SUPPLEMENTATION THERAPY
     Dosage: UNK, DAILY (1/D)
     Route: 048

REACTIONS (11)
  - ASTHENIA [None]
  - BLOOD CREATINE PHOSPHOKINASE INCREASED [None]
  - DEPRESSION [None]
  - FATIGUE [None]
  - NEUROLEPTIC MALIGNANT SYNDROME [None]
  - PARKINSONISM [None]
  - RASH MACULO-PAPULAR [None]
  - SERUM FERRITIN INCREASED [None]
  - THIRST DECREASED [None]
  - TRANSAMINASES INCREASED [None]
  - WHITE BLOOD CELL COUNT INCREASED [None]
